FAERS Safety Report 24042422 (Version 1)
Quarter: 2024Q3

REPORT INFORMATION
  Report Type: Report from Study
  Country: US (occurrence: US)
  Receive Date: 20240702
  Receipt Date: 20240702
  Transmission Date: 20241017
  Serious: Yes (Other)
  Sender: ABBVIE
  Company Number: US-ABBVIE-5821548

PATIENT
  Age: 60 Year
  Sex: Female

DRUGS (1)
  1. HUMIRA [Suspect]
     Active Substance: ADALIMUMAB
     Indication: Product used for unknown indication
     Route: 058
     Dates: start: 20191203

REACTIONS (5)
  - Chronic kidney disease [Not Recovered/Not Resolved]
  - Fall [Recovering/Resolving]
  - Haematocrit decreased [Unknown]
  - Haemoglobin decreased [Unknown]
  - Back injury [Recovering/Resolving]

NARRATIVE: CASE EVENT DATE: 20240501
